FAERS Safety Report 6864878-4 (Version None)
Quarter: 2010Q3

REPORT INFORMATION
  Report Type: 
  Country: None (occurrence: None)
  Receive Date: 20100720
  Receipt Date: 20100714
  Transmission Date: 20110219
  Serious: Yes (Other)
  Sender: FDA-Public Use
  Company Number: 2010SP029338

PATIENT
  Age: 24 Year
  Sex: Female
  Weight: 58 kg

DRUGS (3)
  1. NUVARING [Suspect]
     Indication: CONTRACEPTION
     Dosage: QM;VAG
     Route: 067
     Dates: start: 20090710, end: 20091220
  2. NUVARING [Suspect]
     Indication: CONTRACEPTION
     Dosage: QM;VAG
     Route: 067
     Dates: start: 20100404
  3. ARMONYL [Concomitant]

REACTIONS (8)
  - DEVICE EXPULSION [None]
  - DIZZINESS [None]
  - ECONOMIC PROBLEM [None]
  - HEADACHE [None]
  - MEDICAL DEVICE PAIN [None]
  - MOOD ALTERED [None]
  - OVARIAN CYST [None]
  - VAGINAL INFLAMMATION [None]
